FAERS Safety Report 9985191 (Version 1)
Quarter: 2014Q1

REPORT INFORMATION
  Report Type: Report from Study
  Country: US (occurrence: US)
  Receive Date: 20140307
  Receipt Date: 20140307
  Transmission Date: 20141002
  Serious: No
  Sender: FDA-Public Use
  Company Number: US-ABBVIE-14P-163-1187911-00

PATIENT
  Sex: Female

DRUGS (5)
  1. HUMIRA [Suspect]
     Indication: CROHN^S DISEASE
     Dosage: FOUR INJECTIONS
     Dates: start: 20131107, end: 20131107
  2. HUMIRA [Suspect]
     Dosage: TWO INJECTIONS
     Dates: start: 20131121, end: 20131121
  3. HUMIRA [Suspect]
     Dosage: FOUR INJECTIONS
     Dates: start: 20131205, end: 20131205
  4. HUMIRA [Suspect]
     Dosage: TWO INJECTIONS
     Dates: start: 20131219, end: 20131219
  5. HUMIRA [Suspect]

REACTIONS (1)
  - Drug prescribing error [Unknown]
